FAERS Safety Report 5378474-1 (Version None)
Quarter: 2007Q3

REPORT INFORMATION
  Report Type: 
  Country: None (occurrence: None)
  Receive Date: 20070705
  Receipt Date: 20070629
  Transmission Date: 20080115
  Serious: Yes (Other)
  Sender: FDA-Public Use
  Company Number: DE-AVENTIS-200711678DE

PATIENT
  Age: 74 Year
  Sex: Male

DRUGS (1)
  1. LANTUS [Suspect]
     Dosage: DOSE: NOT REPORTED

REACTIONS (1)
  - DIABETIC RETINOPATHY [None]
